FAERS Safety Report 4847079-0 (Version None)
Quarter: 2005Q4

REPORT INFORMATION
  Report Type: 
  Country: None (occurrence: None)
  Receive Date: 20051206
  Receipt Date: 20051206
  Transmission Date: 20060501
  Serious: Yes (Hospitalization)
  Sender: FDA-Public Use
  Company Number: None

PATIENT
  Age: 67 Year
  Sex: Female
  Weight: 62.5964 kg

DRUGS (1)
  1. FASLODEX [Suspect]
     Indication: BREAST CANCER
     Dosage: 250MG  EVERY 4 WEEKS IM
     Route: 030
     Dates: start: 20050819

REACTIONS (13)
  - ANOREXIA [None]
  - BACK PAIN [None]
  - CHILLS [None]
  - DEHYDRATION [None]
  - DIFFICULTY IN WALKING [None]
  - DYSPNOEA [None]
  - FATIGUE [None]
  - FEELING ABNORMAL [None]
  - FEELING COLD [None]
  - ORAL INTAKE REDUCED [None]
  - PYREXIA [None]
  - RETCHING [None]
  - TREMOR [None]
